FAERS Safety Report 7162851-2 (Version None)
Quarter: 2010Q4

REPORT INFORMATION
  Report Type: 
  Country: None (occurrence: None)
  Receive Date: 20101215
  Receipt Date: 20100105
  Transmission Date: 20110411
  Serious: Yes (Hospitalization, Other)
  Sender: FDA-Public Use
  Company Number: AU-PFIZER INC-2009310642

PATIENT
  Age: 61 Year
  Sex: Female

DRUGS (21)
  1. LYRICA [Suspect]
     Indication: TRIGEMINAL NEURALGIA
     Dosage: 75 MG, 2X/DAY
     Route: 048
  2. LYRICA [Suspect]
     Dosage: 75 MG, 3X/DAY
     Route: 048
  3. LYRICA [Suspect]
     Dosage: 75 MG, 4X/DAY
     Route: 048
  4. LYRICA [Suspect]
     Dosage: 75 MG, 2 TABLETS TWICE DAILY
     Route: 048
     Dates: start: 20090326, end: 20090411
  5. ACTONEL WITH CALCIUM (COPACKAGED) [Concomitant]
     Indication: OSTEOPOROSIS
     Dosage: 35 MG, WEEKLY
     Dates: start: 20090810
  6. BACLOFEN [Concomitant]
     Indication: BACK PAIN
     Dosage: 10 MG, 3X/DAY
     Dates: start: 20090713
  7. BRICANYL [Concomitant]
     Dosage: 500 UG, AS NEEDED
     Dates: start: 20090217
  8. CRANBERRY [Concomitant]
     Dosage: 10G/100MG ONE DAILY
     Dates: start: 20090902
  9. ELOCON [Concomitant]
     Indication: DERMATITIS
     Dosage: 0.1 %, DAILY
     Dates: start: 20090727
  10. IRON POLYMALTOSE [Concomitant]
     Dosage: 100MG/2ML
     Dates: start: 20070920
  11. FRUSEMIDE [Concomitant]
     Dosage: 40 MG, 1X/DAY MANE
     Dates: start: 20090105
  12. KARVEA [Concomitant]
     Indication: HYPERTENSION
     Dosage: 300 MG, 1X/DAY
     Dates: start: 20081021
  13. MOVICOL [Concomitant]
     Indication: CONSTIPATION
     Dosage: 13.125G/350.7MG/46.6MG/178.5MG PER SACHET
     Dates: start: 20090902
  14. COLECALCIFEROL [Concomitant]
     Dosage: 25 UG, 2X/DAY
     Dates: start: 20080625
  15. OXYCODONE HYDROCHLORIDE [Concomitant]
     Dosage: 20 MG, AS NEEDED
     Dates: start: 20090902
  16. ACETAMINOPHEN W/ CODEINE [Concomitant]
     Dosage: 500MG/30MG
     Dates: start: 20090902
  17. SYMBICORT [Concomitant]
     Dosage: 200UG/6UG/DOSE
     Dates: start: 20090217
  18. TEGRETOL-XR [Concomitant]
     Dosage: 200 MG, 2X/DAY
     Dates: start: 20081021
  19. LEVOTHYROXINE SODIUM [Concomitant]
     Dosage: 200 UG, 1X/DAY MANE
     Dates: start: 20081021
  20. VAGIFEM [Concomitant]
     Indication: ATROPHIC VULVOVAGINITIS
     Dosage: 25 UG, 1X2 WEEKLY
     Dates: start: 20090810
  21. ZOTON [Concomitant]
     Indication: GASTROOESOPHAGEAL REFLUX DISEASE
     Dosage: 30 MG, 2X/DAY
     Dates: start: 20090601

REACTIONS (10)
  - ABASIA [None]
  - BLINDNESS [None]
  - DYSSTASIA [None]
  - EYE MOVEMENT DISORDER [None]
  - JOINT SWELLING [None]
  - OEDEMA PERIPHERAL [None]
  - PAIN [None]
  - TREMOR [None]
  - URINARY TRACT INFECTION [None]
  - WEIGHT INCREASED [None]
